FAERS Safety Report 25117491 (Version 1)
Quarter: 2025Q1

REPORT INFORMATION
  Report Type: Report from Study
  Country: JP (occurrence: JP)
  Receive Date: 20250325
  Receipt Date: 20250325
  Transmission Date: 20250409
  Serious: Yes (Other)
  Sender: ROCHE
  Company Number: JP-CHUGAI-2025008374

PATIENT
  Weight: 35.6 kg

DRUGS (30)
  1. RITUXIMAB [Suspect]
     Active Substance: RITUXIMAB
     Indication: Diffuse large B-cell lymphoma
     Dosage: 460 MILLIGRAM, QD
     Route: 042
     Dates: start: 20240521, end: 20240521
  2. RITUXIMAB [Suspect]
     Active Substance: RITUXIMAB
     Dosage: 500 MILLIGRAM, QD
     Route: 042
     Dates: start: 20240610, end: 20240610
  3. RITUXIMAB [Suspect]
     Active Substance: RITUXIMAB
     Dosage: 460 MILLIGRAM, QD
     Route: 042
     Dates: start: 20240702, end: 20240702
  4. RITUXIMAB [Suspect]
     Active Substance: RITUXIMAB
     Dosage: 460 MILLIGRAM, QD
     Route: 042
     Dates: start: 20240730, end: 20240730
  5. RITUXIMAB [Suspect]
     Active Substance: RITUXIMAB
     Dosage: 460 MILLIGRAM, QD
     Route: 042
     Dates: start: 20240820, end: 20240820
  6. RITUXIMAB [Suspect]
     Active Substance: RITUXIMAB
     Dosage: 460 MILLIGRAM, QD
     Route: 042
     Dates: start: 2024, end: 2024
  7. POLIVY [Suspect]
     Active Substance: POLATUZUMAB VEDOTIN-PIIQ
     Indication: Diffuse large B-cell lymphoma
     Dosage: 60 MILLIGRAM, QD
     Route: 042
     Dates: start: 20240521, end: 20240521
  8. POLIVY [Suspect]
     Active Substance: POLATUZUMAB VEDOTIN-PIIQ
     Dosage: 60 MILLIGRAM, QD
     Route: 042
     Dates: start: 20240610, end: 20240610
  9. POLIVY [Suspect]
     Active Substance: POLATUZUMAB VEDOTIN-PIIQ
     Dosage: 60 MILLIGRAM, QD
     Route: 042
     Dates: start: 20240702, end: 20240702
  10. POLIVY [Suspect]
     Active Substance: POLATUZUMAB VEDOTIN-PIIQ
     Dosage: 60 MILLIGRAM, QD
     Route: 042
     Dates: start: 20240730, end: 20240730
  11. POLIVY [Suspect]
     Active Substance: POLATUZUMAB VEDOTIN-PIIQ
     Dosage: 60 MILLIGRAM, QD
     Route: 042
     Dates: start: 20240820, end: 20240820
  12. POLIVY [Suspect]
     Active Substance: POLATUZUMAB VEDOTIN-PIIQ
     Dosage: 60 MILLIGRAM, QD
     Route: 042
     Dates: start: 2024, end: 2024
  13. CYCLOPHOSPHAMIDE [Suspect]
     Active Substance: CYCLOPHOSPHAMIDE
     Indication: Diffuse large B-cell lymphoma
     Dosage: 490 MILLIGRAM, QD
     Route: 042
     Dates: start: 20240521, end: 20240521
  14. CYCLOPHOSPHAMIDE [Suspect]
     Active Substance: CYCLOPHOSPHAMIDE
     Dosage: 500 MILLIGRAM, QD
     Route: 042
     Dates: start: 20240610, end: 20240610
  15. CYCLOPHOSPHAMIDE [Suspect]
     Active Substance: CYCLOPHOSPHAMIDE
     Dosage: 490 MILLIGRAM, QD
     Route: 042
     Dates: start: 20240702, end: 20240702
  16. CYCLOPHOSPHAMIDE [Suspect]
     Active Substance: CYCLOPHOSPHAMIDE
     Dosage: 490 MILLIGRAM, QD
     Route: 042
     Dates: start: 20240730, end: 20240730
  17. CYCLOPHOSPHAMIDE [Suspect]
     Active Substance: CYCLOPHOSPHAMIDE
     Dosage: 490 MILLIGRAM, QD
     Route: 042
     Dates: start: 20240820, end: 20240820
  18. CYCLOPHOSPHAMIDE [Suspect]
     Active Substance: CYCLOPHOSPHAMIDE
     Dosage: 490 MILLIGRAM, QD
     Route: 042
     Dates: start: 2024, end: 2024
  19. DOXORUBICIN HYDROCHLORIDE [Suspect]
     Active Substance: DOXORUBICIN HYDROCHLORIDE
     Indication: Diffuse large B-cell lymphoma
     Dosage: 30 MILLIGRAM, QD
     Route: 042
     Dates: start: 20240521, end: 20240521
  20. DOXORUBICIN HYDROCHLORIDE [Suspect]
     Active Substance: DOXORUBICIN HYDROCHLORIDE
     Dosage: 30 MILLIGRAM, QD
     Route: 042
     Dates: start: 20240610, end: 20240610
  21. DOXORUBICIN HYDROCHLORIDE [Suspect]
     Active Substance: DOXORUBICIN HYDROCHLORIDE
     Dosage: 30 MILLIGRAM, QD
     Route: 042
     Dates: start: 20240702, end: 20240702
  22. DOXORUBICIN HYDROCHLORIDE [Suspect]
     Active Substance: DOXORUBICIN HYDROCHLORIDE
     Dosage: 30 MILLIGRAM, QD
     Route: 042
     Dates: start: 20240730, end: 20240730
  23. DOXORUBICIN HYDROCHLORIDE [Suspect]
     Active Substance: DOXORUBICIN HYDROCHLORIDE
     Dosage: 30 MILLIGRAM, QD
     Route: 042
     Dates: start: 20240820, end: 20240820
  24. DOXORUBICIN HYDROCHLORIDE [Suspect]
     Active Substance: DOXORUBICIN HYDROCHLORIDE
     Dosage: 30 MILLIGRAM, QD
     Route: 042
     Dates: start: 2024, end: 2024
  25. METHYLPREDNISOLONE SODIUM SUCCINATE [Suspect]
     Active Substance: METHYLPREDNISOLONE SODIUM SUCCINATE
     Indication: Diffuse large B-cell lymphoma
     Route: 042
     Dates: start: 20240610, end: 20240610
  26. METHYLPREDNISOLONE SODIUM SUCCINATE [Suspect]
     Active Substance: METHYLPREDNISOLONE SODIUM SUCCINATE
     Route: 042
     Dates: start: 20240702, end: 20240702
  27. METHYLPREDNISOLONE SODIUM SUCCINATE [Suspect]
     Active Substance: METHYLPREDNISOLONE SODIUM SUCCINATE
     Route: 042
     Dates: start: 20240730, end: 20240730
  28. METHYLPREDNISOLONE SODIUM SUCCINATE [Suspect]
     Active Substance: METHYLPREDNISOLONE SODIUM SUCCINATE
     Route: 042
     Dates: start: 20240820, end: 20240820
  29. METHYLPREDNISOLONE SODIUM SUCCINATE [Suspect]
     Active Substance: METHYLPREDNISOLONE SODIUM SUCCINATE
     Route: 042
     Dates: start: 2024
  30. METHYLPREDNISOLONE SODIUM SUCCINATE [Suspect]
     Active Substance: METHYLPREDNISOLONE SODIUM SUCCINATE
     Route: 042
     Dates: start: 20240521, end: 20240521

REACTIONS (6)
  - Pulmonary embolism [Unknown]
  - Febrile neutropenia [Unknown]
  - Deep vein thrombosis [Unknown]
  - Constipation [Unknown]
  - Pneumonia [Unknown]
  - Oedema peripheral [Unknown]

NARRATIVE: CASE EVENT DATE: 20240101
